FAERS Safety Report 6493503-X (Version None)
Quarter: 2009Q4

REPORT INFORMATION
  Report Type: 
  Country: None (occurrence: None)
  Receive Date: 20091214
  Receipt Date: 20091208
  Transmission Date: 20100525
  Serious: Yes (Hospitalization)
  Sender: FDA-Public Use
  Company Number: FR-BAYER-200942431GPV

PATIENT
  Age: 73 Year
  Sex: Female

DRUGS (3)
  1. NEXAVAR [Suspect]
     Route: 048
     Dates: start: 20080901, end: 20081127
  2. NEXAVAR [Suspect]
     Dosage: TOTAL DAILY DOSE: 800 MG
     Route: 048
     Dates: start: 20081128, end: 20081226
  3. SKENAN [Concomitant]
     Dosage: TOTAL DAILY DOSE: 60 MG

REACTIONS (2)
  - ANAL ABSCESS [None]
  - ANAL FISSURE [None]
